FAERS Safety Report 9159885 (Version 5)
Quarter: 2014Q1

REPORT INFORMATION
  Report Type: Spontaneous
  Country: JP (occurrence: None)
  Receive Date: 20130220
  Receipt Date: 20140326
  Transmission Date: 20141002
  Serious: Yes (Hospitalization, Other)
  Sender: FDA-Public Use
  Company Number: JP-2013-10385

PATIENT
  Age: 48 Year
  Sex: Female
  Weight: 53 kg

DRUGS (7)
  1. OPC-41061 [Suspect]
     Indication: CONGENITAL CYSTIC KIDNEY DISEASE
     Route: 048
     Dates: start: 20120123, end: 20130205
  2. OPC-41061 [Suspect]
     Route: 048
     Dates: start: 20120123, end: 20130205
  3. MICARDIS (TELMISARTAN) [Concomitant]
  4. CALBLOCK [Concomitant]
  5. FERROMIA [Concomitant]
  6. AZOPT [Concomitant]
  7. TRAVATANZ [Concomitant]

REACTIONS (3)
  - Renal cyst ruptured [None]
  - Ovarian neoplasm [None]
  - Uterine cancer [None]
